FAERS Safety Report 7416878-3 (Version None)
Quarter: 2011Q2

REPORT INFORMATION
  Report Type: 
  Country: None (occurrence: None)
  Receive Date: 20110408
  Receipt Date: 20110404
  Transmission Date: 20111010
  Serious: Yes (Death)
  Sender: FDA-Public Use
  Company Number: 2011S1000118

PATIENT
  Sex: Male

DRUGS (2)
  1. INOMAX [Suspect]
     Indication: PULMONARY HYPERTENSION
     Dosage: 20 PPM;CONT;INH
     Route: 055
     Dates: start: 20110325, end: 20110325
  2. INOMAX [Suspect]

REACTIONS (2)
  - CARDIO-RESPIRATORY ARREST [None]
  - MEDICAL DEVICE COMPLICATION [None]
